FAERS Safety Report 8076423-9 (Version None)
Quarter: 2012Q1

REPORT INFORMATION
  Report Type: 
  Country: None (occurrence: None)
  Receive Date: 20120127
  Receipt Date: 20120119
  Transmission Date: 20120608
  Serious: Yes (Hospitalization)
  Sender: FDA-Public Use
  Company Number: US-BAYER-2011-087646

PATIENT
  Sex: Female

DRUGS (5)
  1. ALBUTEROL [Concomitant]
  2. YAZ [Suspect]
     Dosage: UNK
     Route: 048
     Dates: start: 20090101, end: 20100101
  3. PENICILLIN [Concomitant]
     Dosage: UNK
     Dates: start: 20090105
  4. AMERGE [Concomitant]
     Dosage: UNK UNK, PRN
     Route: 048
     Dates: start: 20090210
  5. ATROVENT [Concomitant]

REACTIONS (3)
  - GALLBLADDER DISORDER [None]
  - CHOLECYSTITIS CHRONIC [None]
  - PAIN [None]
